FAERS Safety Report 17907762 (Version 3)
Quarter: 2021Q4

REPORT INFORMATION
  Report Type: Report from Study
  Country: US (occurrence: US)
  Receive Date: 20200617
  Receipt Date: 20211231
  Transmission Date: 20220303
  Serious: No
  Sender: FDA-Public Use
  Company Number: NVSC2020US168847

PATIENT
  Sex: Female

DRUGS (2)
  1. COSENTYX [Suspect]
     Active Substance: SECUKINUMAB
     Indication: Psoriasis
     Dosage: 300 MG QW (EVERY WEEK X 5 WEEKS THEN EVERY 4 WEEKS)
     Route: 058
     Dates: start: 20210928
  2. COSENTYX [Suspect]
     Active Substance: SECUKINUMAB
     Dosage: 300 MG, QMO
     Route: 058

REACTIONS (4)
  - Condition aggravated [Unknown]
  - Depression [Unknown]
  - Psoriasis [Unknown]
  - Drug ineffective [Unknown]
